FAERS Safety Report 7699409-2 (Version None)
Quarter: 2011Q3

REPORT INFORMATION
  Report Type: 
  Country: None (occurrence: None)
  Receive Date: 20110819
  Receipt Date: 20110810
  Transmission Date: 20111222
  Serious: Yes (Hospitalization, Other)
  Sender: FDA-Public Use
  Company Number: US-ASTRAZENECA-2011SE47783

PATIENT
  Age: 54 Year
  Sex: Female
  Weight: 81.6 kg

DRUGS (4)
  1. ELLOPRIL [Concomitant]
  2. NAPROXEN (ALEVE) [Concomitant]
  3. NEXIUM [Suspect]
     Indication: GASTROOESOPHAGEAL REFLUX DISEASE
     Route: 048
     Dates: start: 20100101
  4. PRILOSEC OTC [Suspect]
     Indication: GASTROOESOPHAGEAL REFLUX DISEASE
     Route: 048
     Dates: end: 20100101

REACTIONS (6)
  - SYNCOPE [None]
  - NERVE COMPRESSION [None]
  - IMPAIRED WORK ABILITY [None]
  - PARALYSIS [None]
  - PAIN [None]
  - ARTHRITIS [None]
